FAERS Safety Report 22230120 (Version 1)
Quarter: 2023Q2

REPORT INFORMATION
  Report Type: Spontaneous
  Country: GB (occurrence: GB)
  Receive Date: 20230419
  Receipt Date: 20230419
  Transmission Date: 20230722
  Serious: Yes (Other)
  Sender: FDA-Public Use
  Company Number: None

PATIENT
  Age: 32 Year
  Sex: Female

DRUGS (1)
  1. METROGEL VAGINAL [Suspect]
     Active Substance: METRONIDAZOLE
     Indication: Tooth abscess
     Route: 065

REACTIONS (3)
  - Neuropathy peripheral [Recovering/Resolving]
  - Anxiety [Recovering/Resolving]
  - Confusional state [Recovered/Resolved]
